FAERS Safety Report 16766666 (Version 1)
Quarter: 2019Q3

REPORT INFORMATION
  Report Type: Spontaneous
  Country: DE (occurrence: DE)
  Receive Date: 20190903
  Receipt Date: 20190903
  Transmission Date: 20191005
  Serious: Yes (Hospitalization)
  Sender: FDA-Public Use
  Company Number: DE-MYLANLABS-2019M1081208

PATIENT
  Age: 39 Year
  Sex: Female

DRUGS (4)
  1. METAMIZOLE [Suspect]
     Active Substance: METAMIZOLE
     Indication: MYOSCLEROSIS
     Dosage: UNK
  2. DEXAMETHASONE. [Suspect]
     Active Substance: DEXAMETHASONE
     Indication: MYOSCLEROSIS
     Dosage: UNK
  3. MEPIVACAINE [Suspect]
     Active Substance: MEPIVACAINE HYDROCHLORIDE
     Indication: MYOSCLEROSIS
     Dosage: UNK
  4. TRAMADOL. [Suspect]
     Active Substance: TRAMADOL
     Indication: MYOSCLEROSIS
     Dosage: UNK

REACTIONS (6)
  - Depressed level of consciousness [Recovered/Resolved]
  - Quadriparesis [Unknown]
  - VIIIth nerve injury [Not Recovered/Not Resolved]
  - Sensory disturbance [Unknown]
  - Wrong technique in product usage process [Unknown]
  - Deafness neurosensory [Not Recovered/Not Resolved]
